FAERS Safety Report 9352937 (Version 1)
Quarter: 2013Q2

REPORT INFORMATION
  Report Type: Spontaneous
  Country: US (occurrence: None)
  Receive Date: 20130614
  Receipt Date: 20130614
  Transmission Date: 20140414
  Serious: Yes (Other)
  Sender: FDA-Public Use
  Company Number: None

PATIENT
  Age: 44 Year
  Sex: Male

DRUGS (1)
  1. HUMIRA [Suspect]
     Indication: CROHN^S DISEASE
     Dosage: 40MG EVERY WEEK SQ
     Route: 058
     Dates: start: 20120801, end: 20130301

REACTIONS (2)
  - Crohn^s disease [None]
  - Disease progression [None]
